FAERS Safety Report 10678266 (Version 2)
Quarter: 2014Q4

REPORT INFORMATION
  Report Type: Spontaneous
  Country: JP (occurrence: JP)
  Receive Date: 20141229
  Receipt Date: 20141229
  Transmission Date: 20150529
  Serious: Yes (Death)
  Sender: FDA-Public Use
  Company Number: PHHY2014JP165747

PATIENT

DRUGS (2)
  1. NEORAL [Suspect]
     Active Substance: CYCLOSPORINE
     Indication: RESPIRATORY DISORDER
     Dosage: 50 MG, BID
     Route: 048
  2. SANDIMMUNE [Suspect]
     Active Substance: CYCLOSPORINE
     Indication: RESPIRATORY DISORDER
     Dosage: 50 MG, DAILY
     Route: 042

REACTIONS (3)
  - Respiratory disorder [Fatal]
  - Oral administration complication [Unknown]
  - Disease progression [Fatal]
